FAERS Safety Report 5636712-1 (Version None)
Quarter: 2008Q1

REPORT INFORMATION
  Report Type: 
  Country: None (occurrence: None)
  Receive Date: 20080225
  Receipt Date: 20080215
  Transmission Date: 20080703
  Serious: Yes (Other)
  Sender: FDA-Public Use
  Company Number: PL-ASTRAZENECA-2008SE00895

PATIENT
  Age: 28151 Day
  Sex: Male
  Weight: 87 kg

DRUGS (12)
  1. ROSUVASTATIN [Suspect]
     Indication: CARDIOVASCULAR EVENT PROPHYLAXIS
     Route: 048
     Dates: start: 20060929, end: 20080214
  2. ZAFIRON [Concomitant]
     Indication: CHRONIC OBSTRUCTIVE PULMONARY DISEASE
     Route: 055
     Dates: start: 20010101
  3. ATROVENT [Concomitant]
     Indication: CHRONIC OBSTRUCTIVE PULMONARY DISEASE
     Route: 055
     Dates: start: 20070419
  4. LORISTA [Concomitant]
     Indication: HYPERTENSION
     Route: 048
     Dates: start: 20070705
  5. NILOGRIN [Concomitant]
     Indication: VERTIGO
     Route: 048
     Dates: start: 20070709
  6. FORADIL [Concomitant]
     Indication: CHRONIC OBSTRUCTIVE PULMONARY DISEASE
     Route: 055
     Dates: start: 20070801
  7. ISOPTIN [Concomitant]
     Indication: PALPITATIONS
     Route: 048
     Dates: start: 20071001
  8. SPIRONOL [Concomitant]
     Indication: PROPHYLAXIS
     Route: 048
     Dates: start: 20080129, end: 20080214
  9. ORTANOL [Concomitant]
     Indication: PROPHYLAXIS
     Route: 048
     Dates: start: 20080129, end: 20080211
  10. ENCORTON [Concomitant]
     Indication: CHRONIC OBSTRUCTIVE PULMONARY DISEASE
     Route: 048
     Dates: start: 20080129, end: 20080209
  11. PULMICORT [Concomitant]
     Indication: CHRONIC OBSTRUCTIVE PULMONARY DISEASE
     Route: 055
     Dates: start: 20080120
  12. TERTENSIF [Concomitant]
     Indication: HYPERTENSION
     Route: 048
     Dates: start: 20080120

REACTIONS (1)
  - DERMATITIS EXFOLIATIVE [None]
